FAERS Safety Report 4919001-X (Version None)
Quarter: 2006Q1

REPORT INFORMATION
  Report Type: 
  Country: None (occurrence: None)
  Receive Date: 20060222
  Receipt Date: 20051005
  Transmission Date: 20060701
  Serious: Yes (Hospitalization)
  Sender: FDA-Public Use
  Company Number: US-MERCK-0510USA04848

PATIENT
  Age: 39 Year
  Sex: Male

DRUGS (1)
  1. VIOXX [Suspect]
     Route: 048
     Dates: start: 20030701, end: 20030901

REACTIONS (15)
  - ANXIETY [None]
  - BLOOD BILIRUBIN INCREASED [None]
  - BLOOD GLUCOSE INCREASED [None]
  - BLOOD UREA INCREASED [None]
  - BUNDLE BRANCH BLOCK LEFT [None]
  - CARDIAC FAILURE CONGESTIVE [None]
  - CARDIOMYOPATHY [None]
  - DEHYDRATION [None]
  - HAEMATOCRIT DECREASED [None]
  - JOINT EFFUSION [None]
  - ORAL INTAKE REDUCED [None]
  - PAIN [None]
  - POST PROCEDURAL HAEMORRHAGE [None]
  - SLEEP APNOEA SYNDROME [None]
  - WHITE BLOOD CELL COUNT INCREASED [None]
